FAERS Safety Report 8249160-5 (Version None)
Quarter: 2012Q2

REPORT INFORMATION
  Report Type: 
  Country: None (occurrence: None)
  Receive Date: 20120402
  Receipt Date: 20120329
  Transmission Date: 20120825
  Serious: No
  Sender: FDA-Public Use
  Company Number: US-PFIZER INC-2012065334

PATIENT
  Age: 22 Year
  Sex: Female
  Weight: 52.154 kg

DRUGS (2)
  1. PRISTIQ [Suspect]
     Indication: DEPRESSION
     Dosage: 50 MG, 1X/DAY
     Route: 048
     Dates: start: 20120101, end: 20120214
  2. PRISTIQ [Suspect]
     Dosage: 50 MG, ALTERNATE DAY
     Route: 048
     Dates: start: 20120214

REACTIONS (5)
  - FEELING JITTERY [None]
  - FEELING ABNORMAL [None]
  - DYSKINESIA [None]
  - HEADACHE [None]
  - UNEVALUABLE EVENT [None]
